FAERS Safety Report 8133300-2 (Version None)
Quarter: 2012Q1

REPORT INFORMATION
  Report Type: 
  Country: None (occurrence: None)
  Receive Date: 20120213
  Receipt Date: 20120203
  Transmission Date: 20120608
  Serious: Yes (Death)
  Sender: FDA-Public Use
  Company Number: US-MYLANLABS-2012S1002583

PATIENT
  Age: 38 Year
  Sex: Female
  Weight: 67.95 kg

DRUGS (3)
  1. FENTANYL [Suspect]
  2. PROMETHAZINE [Suspect]
  3. DIPHENHYDRAMINE HCL [Suspect]

REACTIONS (1)
  - TOXICITY TO VARIOUS AGENTS [None]
